FAERS Safety Report 11359354 (Version 1)
Quarter: 2015Q3

REPORT INFORMATION
  Report Type: Spontaneous
  Country: US (occurrence: US)
  Receive Date: 20150807
  Receipt Date: 20150807
  Transmission Date: 20151125
  Serious: Yes (Other)
  Sender: FDA-Public Use
  Company Number: US-ASTRAZENECA-2015SE55510

PATIENT
  Age: 22962 Day
  Sex: Female
  Weight: 59 kg

DRUGS (16)
  1. KLONIPIN [Concomitant]
     Active Substance: CLONAZEPAM
     Indication: ANXIETY
  2. GARLIC OIL [Concomitant]
     Active Substance: GARLIC OIL
     Dosage: DAILY
  3. LATUDA [Suspect]
     Active Substance: LURASIDONE HYDROCHLORIDE
     Indication: ANXIETY
     Route: 048
     Dates: start: 20150519, end: 20150526
  4. PAXIL [Concomitant]
     Active Substance: PAROXETINE HYDROCHLORIDE
     Indication: DEPRESSION
  5. FISH OIL [Concomitant]
     Active Substance: FISH OIL
     Dosage: DAILY
  6. SEROQUEL [Suspect]
     Active Substance: QUETIAPINE FUMARATE
     Indication: INSOMNIA
     Route: 048
     Dates: start: 20150527
  7. GLUCOSAMINE CHONDROITIN [Concomitant]
     Active Substance: CHONDROITIN SULFATE (BOVINE)\GLUCOSAMINE HYDROCHLORIDE
     Dosage: DAILY
  8. CALCIUM [Concomitant]
     Active Substance: CALCIUM
     Dosage: DAILY
  9. LATUDA [Suspect]
     Active Substance: LURASIDONE HYDROCHLORIDE
     Indication: INSOMNIA
     Route: 048
     Dates: start: 20150519, end: 20150526
  10. LATUDA [Suspect]
     Active Substance: LURASIDONE HYDROCHLORIDE
     Indication: DEPRESSION
     Route: 048
     Dates: start: 20150519, end: 20150526
  11. LATUDA [Suspect]
     Active Substance: LURASIDONE HYDROCHLORIDE
     Indication: POST-TRAUMATIC STRESS DISORDER
     Route: 048
     Dates: start: 20150519, end: 20150526
  12. HYDROXYZINE PAM [Concomitant]
     Indication: SLEEP DISORDER
  13. MULTIVITAMIN [Concomitant]
     Active Substance: VITAMINS
     Dosage: DAILY
  14. SEROQUEL [Suspect]
     Active Substance: QUETIAPINE FUMARATE
     Indication: INSOMNIA
     Dosage: ACCORD HEALTHCARE; 50 MG, AT NIGHT
     Route: 048
     Dates: start: 20150527, end: 20150530
  15. LEVOTHYROXINE. [Concomitant]
     Active Substance: LEVOTHYROXINE
     Indication: THYROID DISORDER
  16. LUTEIN [Concomitant]
     Active Substance: LUTEIN
     Indication: EYE DISORDER
     Dosage: DAILY

REACTIONS (35)
  - Pain [Recovering/Resolving]
  - Agitation [Unknown]
  - Abdominal rigidity [Not Recovered/Not Resolved]
  - Nausea [Recovered/Resolved]
  - Depression [Unknown]
  - Disorganised speech [Unknown]
  - Vomiting [Recovered/Resolved]
  - Abnormal behaviour [Unknown]
  - Pollakiuria [Unknown]
  - Dizziness [Recovered/Resolved]
  - Loss of consciousness [Recovered/Resolved]
  - Muscle rigidity [Recovered/Resolved]
  - Hypersomnia [Recovered/Resolved]
  - Mood altered [Unknown]
  - Anxiety [Unknown]
  - Somnolence [Recovered/Resolved]
  - Palpitations [Unknown]
  - Somnolence [Unknown]
  - Blood pressure increased [Recovered/Resolved]
  - Abasia [Unknown]
  - Polyuria [Recovered/Resolved]
  - Confusional state [Recovered/Resolved]
  - Restlessness [Unknown]
  - Heart rate increased [Recovered/Resolved]
  - Muscle spasms [Unknown]
  - Muscular weakness [Recovering/Resolving]
  - Retching [Recovered/Resolved]
  - Abdominal pain upper [Not Recovered/Not Resolved]
  - Aggression [Unknown]
  - Impulsive behaviour [Unknown]
  - Memory impairment [Not Recovered/Not Resolved]
  - Disturbance in attention [Not Recovered/Not Resolved]
  - Constipation [Recovered/Resolved]
  - Blood pressure abnormal [Unknown]
  - Off label use [Recovered/Resolved]

NARRATIVE: CASE EVENT DATE: 20150527
